FAERS Safety Report 22139277 (Version 1)
Quarter: 2023Q1

REPORT INFORMATION
  Report Type: Spontaneous
  Country: CN (occurrence: CN)
  Receive Date: 20230327
  Receipt Date: 20230327
  Transmission Date: 20230418
  Serious: Yes (Other)
  Sender: FDA-Public Use
  Company Number: CN-002147023-NVSC2023CN066621

PATIENT
  Age: 87 Year
  Sex: Male

DRUGS (1)
  1. SACUBITRIL\VALSARTAN [Suspect]
     Active Substance: SACUBITRIL\VALSARTAN
     Indication: Cardiac failure
     Dosage: 50 MG, QD
     Route: 048
     Dates: start: 20230202, end: 20230203

REACTIONS (7)
  - Shock [Recovered/Resolved]
  - Loss of consciousness [Recovering/Resolving]
  - Urinary incontinence [Recovering/Resolving]
  - Hyperhidrosis [Recovering/Resolving]
  - Hypotension [Recovered/Resolved]
  - Prescribed underdose [Unknown]
  - Inappropriate schedule of product administration [Unknown]

NARRATIVE: CASE EVENT DATE: 20230203
